FAERS Safety Report 10038880 (Version 1)
Quarter: 2014Q1

REPORT INFORMATION
  Report Type: Spontaneous
  Country: FR (occurrence: FR)
  Receive Date: 20140326
  Receipt Date: 20140326
  Transmission Date: 20141002
  Serious: Yes (Hospitalization)
  Sender: FDA-Public Use
  Company Number: FR-GLAXOSMITHKLINE-B0978560A

PATIENT
  Age: 85 Year
  Sex: Female

DRUGS (7)
  1. ZELITREX [Suspect]
     Indication: HERPES ZOSTER
     Dosage: 3000MG PER DAY
     Route: 048
     Dates: start: 20140314, end: 20140316
  2. LOXEN [Concomitant]
  3. KARDEGIC [Concomitant]
  4. TAHOR [Concomitant]
  5. CARDENSIEL [Concomitant]
  6. RENAGEL [Concomitant]
  7. KAYEXALATE [Concomitant]

REACTIONS (3)
  - Hallucination, visual [Recovering/Resolving]
  - Nightmare [Recovering/Resolving]
  - Accidental overdose [Unknown]
